FAERS Safety Report 17620217 (Version 5)
Quarter: 2021Q2

REPORT INFORMATION
  Report Type: Report from Study
  Country: IL (occurrence: IL)
  Receive Date: 20200403
  Receipt Date: 20210413
  Transmission Date: 20210716
  Serious: Yes (Hospitalization, Other)
  Sender: FDA-Public Use
  Company Number: IL-TAKEDA-2020TUS016918

PATIENT
  Age: 72 Year
  Sex: Male

DRUGS (3)
  1. VEDOLIZUMAB [Suspect]
     Active Substance: VEDOLIZUMAB
     Dosage: 300 MILLIGRAM, Q4WEEKS
     Route: 042
  2. SIDERAL FORTE [Concomitant]
     Active Substance: ASCORBIC ACID\FERRIC PYROPHOSPHATE
     Indication: MINERAL SUPPLEMENTATION
     Dosage: UNK
  3. VEDOLIZUMAB [Suspect]
     Active Substance: VEDOLIZUMAB
     Indication: CROHN^S DISEASE
     Dosage: 300 MILLIGRAM
     Route: 042
     Dates: start: 20180501

REACTIONS (8)
  - Intestinal obstruction [Recovered/Resolved]
  - Blood glucose increased [Not Recovered/Not Resolved]
  - Faeces discoloured [Not Recovered/Not Resolved]
  - Faeces soft [Not Recovered/Not Resolved]
  - Polyp [Recovering/Resolving]
  - Gastrointestinal dilation procedure [Recovering/Resolving]
  - Weight decreased [Unknown]
  - Iron deficiency [Recovering/Resolving]

NARRATIVE: CASE EVENT DATE: 202002
